FAERS Safety Report 7463108-2 (Version None)
Quarter: 2011Q2

REPORT INFORMATION
  Report Type: 
  Country: None (occurrence: None)
  Receive Date: 20110428
  Receipt Date: 20110414
  Transmission Date: 20111010
  Serious: Yes (Hospitalization, Other)
  Sender: FDA-Public Use
  Company Number: JPI-P-014598

PATIENT
  Age: 58 Year
  Sex: Male
  Weight: 106.5953 kg

DRUGS (1)
  1. XYREM [Suspect]
     Indication: CATAPLEXY
     Dosage: ORAL, 7.5 GM (3.75 GM, 2 IN 1 D), ORAL
     Route: 048
     Dates: start: 20040201

REACTIONS (4)
  - THERAPEUTIC RESPONSE DECREASED [None]
  - CORONARY ARTERY OCCLUSION [None]
  - POLLAKIURIA [None]
  - DISORIENTATION [None]
